FAERS Safety Report 18065718 (Version 1)
Quarter: 2020Q3

REPORT INFORMATION
  Report Type: Spontaneous
  Country: US (occurrence: US)
  Receive Date: 20200724
  Receipt Date: 20200724
  Transmission Date: 20201103
  Serious: No
  Sender: FDA-Public Use
  Company Number: None

PATIENT
  Age: 47 Year
  Sex: Male

DRUGS (20)
  1. MECLIZINE [Concomitant]
     Active Substance: MECLIZINE HYDROCHLORIDE
  2. VITAMIN D3 [Concomitant]
     Active Substance: CHOLECALCIFEROL
  3. ABILIFY [Concomitant]
     Active Substance: ARIPIPRAZOLE
  4. METFORMIN [Concomitant]
     Active Substance: METFORMIN HYDROCHLORIDE
  5. GABAPENTIN. [Concomitant]
     Active Substance: GABAPENTIN
  6. TIVICAY [Concomitant]
     Active Substance: DOLUTEGRAVIR SODIUM
  7. LACTAID [Concomitant]
     Active Substance: LACTASE
  8. DULOXETINE. [Concomitant]
     Active Substance: DULOXETINE
  9. LEVOTHYROXINE. [Concomitant]
     Active Substance: LEVOTHYROXINE
  10. PAZOSIN [Concomitant]
  11. POLYMYXIN [Concomitant]
     Active Substance: POLYMYXIN
  12. MULTI?VITAMINS [Concomitant]
  13. DESCOVY [Concomitant]
     Active Substance: EMTRICITABINE\TENOFOVIR ALAFENAMIDE FUMARATE
  14. LEVEMIR [Suspect]
     Active Substance: INSULIN DETEMIR
     Indication: PRODUCT USED FOR UNKNOWN INDICATION
     Route: 058
  15. ALBUTEROL. [Concomitant]
     Active Substance: ALBUTEROL
  16. ATORVASTATIN [Concomitant]
     Active Substance: ATORVASTATIN
  17. HUMALOG [Concomitant]
     Active Substance: INSULIN LISPRO
  18. ONE TOUCH [Concomitant]
     Active Substance: DEXTROSE
  19. VICTOZA [Concomitant]
     Active Substance: LIRAGLUTIDE
  20. FISH OIL [Concomitant]
     Active Substance: FISH OIL

REACTIONS (1)
  - Diplopia [None]
